FAERS Safety Report 6214051-8 (Version None)
Quarter: 2009Q2

REPORT INFORMATION
  Report Type: 
  Country: None (occurrence: None)
  Receive Date: 20090604
  Receipt Date: 20090529
  Transmission Date: 20091009
  Serious: Yes (Other)
  Sender: FDA-Public Use
  Company Number: CH-JNJFOC-20090506915

PATIENT
  Sex: Female

DRUGS (7)
  1. TOPAMAX [Suspect]
     Indication: EPILEPSY
     Route: 048
  2. ZONISAMIDE [Suspect]
     Indication: EPILEPSY
     Route: 065
  3. LAMICTAL [Suspect]
     Indication: EPILEPSY
     Route: 065
  4. DEPAKENE [Suspect]
     Indication: EPILEPSY
     Route: 065
  5. RIVOTRIL [Suspect]
     Indication: SLEEP DISORDER
     Route: 065
  6. AULIN [Suspect]
     Indication: BACK PAIN
     Route: 065
  7. FOLIC ACID [Concomitant]
     Route: 065

REACTIONS (4)
  - DRUG EXPOSURE DURING PREGNANCY [None]
  - DRUG INEFFECTIVE [None]
  - PREGNANCY [None]
  - SELECTIVE ABORTION [None]
